FAERS Safety Report 7226230-1 (Version None)
Quarter: 2011Q1

REPORT INFORMATION
  Report Type: 
  Country: None (occurrence: None)
  Receive Date: 20110114
  Receipt Date: 20110104
  Transmission Date: 20110831
  Serious: Yes (Hospitalization, Other)
  Sender: FDA-Public Use
  Company Number: PHHY2011CH01026

PATIENT
  Sex: Female

DRUGS (11)
  1. ASPIRIN [Concomitant]
     Dosage: 100 MG, QD
     Route: 048
     Dates: start: 20100101
  2. STRUCTUM [Concomitant]
     Dosage: 500 MG, BID
     Route: 048
  3. METHOTREXATE [Suspect]
     Indication: POLYARTHRITIS
     Dosage: 10-20 MG PER WEEK
     Route: 048
     Dates: start: 19970101, end: 20100101
  4. LISINOPRIL [Concomitant]
     Dosage: 20 MG, QD
     Route: 048
  5. DAFALGAN [Concomitant]
     Dosage: UNK
  6. LUDIOMIL [Concomitant]
     Dosage: 50 MG, QD
     Route: 048
  7. PREDNISONE [Concomitant]
     Dosage: 5 MG, QD
  8. METHOTREXATE [Suspect]
     Dosage: 20 MG, PER WEEK
     Route: 048
     Dates: start: 20100301, end: 20101115
  9. GLUCOPHAGE [Concomitant]
     Dosage: 1000 MG, BID
     Route: 048
     Dates: end: 20101201
  10. SIMVASTATIN [Suspect]
     Dosage: 40 MG, UNK
     Route: 048
     Dates: start: 20100101, end: 20101215
  11. ESIDRIX [Concomitant]
     Dosage: 25 MG, QD
     Route: 048
     Dates: end: 20101201

REACTIONS (9)
  - DYSPNOEA EXERTIONAL [None]
  - HYPOXIA [None]
  - BLOOD CREATININE INCREASED [None]
  - C-REACTIVE PROTEIN INCREASED [None]
  - PULMONARY FIBROSIS [None]
  - COUGH [None]
  - CEREBROVASCULAR ACCIDENT [None]
  - INTERSTITIAL LUNG DISEASE [None]
  - PYREXIA [None]
